FAERS Safety Report 8390448-5 (Version None)
Quarter: 2012Q2

REPORT INFORMATION
  Report Type: 
  Country: None (occurrence: None)
  Receive Date: 20120529
  Receipt Date: 20120520
  Transmission Date: 20120825
  Serious: Yes (Other)
  Sender: FDA-Public Use
  Company Number: US-US-EMD SERONO, INC.-7134335

PATIENT
  Sex: Female

DRUGS (6)
  1. REBIF [Suspect]
     Indication: MULTIPLE SCLEROSIS
     Route: 058
  2. BACLOFEN [Concomitant]
     Indication: MUSCLE SPASMS
     Dates: end: 20120101
  3. ASPIRIN [Concomitant]
     Indication: ARRHYTHMIA
  4. CARBAMAZEPINE [Suspect]
     Indication: MUSCLE SPASMS
     Dates: start: 20120101, end: 20120301
  5. METOPROLOL TARTRATE [Concomitant]
     Indication: ARRHYTHMIA
  6. FLECAINIDE ACETATE [Concomitant]
     Indication: ARRHYTHMIA

REACTIONS (1)
  - STEVENS-JOHNSON SYNDROME [None]
